FAERS Safety Report 14979458 (Version 4)
Quarter: 2018Q2

REPORT INFORMATION
  Report Type: Spontaneous
  Country: LV (occurrence: LV)
  Receive Date: 20180606
  Receipt Date: 20180622
  Transmission Date: 20180711
  Serious: Yes (Other)
  Sender: FDA-Public Use
  Company Number: LV-PFIZER INC-2018230083

PATIENT
  Age: 72 Year
  Sex: Male

DRUGS (25)
  1. DALACIN C [Suspect]
     Active Substance: CLINDAMYCIN PHOSPHATE
     Indication: NECROTISING FASCIITIS
  2. DICLOFENAC SODIUM. [Suspect]
     Active Substance: DICLOFENAC SODIUM
     Indication: POST PROCEDURAL COMPLICATION
     Dosage: 75 MG, 2X/DAY
     Route: 042
     Dates: start: 20101124
  3. CORDARONE [Concomitant]
     Active Substance: AMIODARONE HYDROCHLORIDE
     Dosage: UNK
  4. DEXAMETHASONE. [Concomitant]
     Active Substance: DEXAMETHASONE
     Dosage: 12 MG, UNK
     Route: 042
  5. AMPICILLIN [Suspect]
     Active Substance: AMPICILLIN
     Indication: NECROTISING FASCIITIS
  6. METROGYL [Suspect]
     Active Substance: METRONIDAZOLE
     Indication: NECROTISING FASCIITIS
     Dosage: 500 MG, EVERY 8 HOURS
  7. BETALOC ZOK [Concomitant]
     Active Substance: METOPROLOL SUCCINATE
     Dosage: UNK
  8. SODIUM CHLORIDE. [Concomitant]
     Active Substance: SODIUM CHLORIDE
     Dosage: SODIUM CHLORIDE- INFUSION
  9. GENTAMICIN. [Suspect]
     Active Substance: GENTAMICIN
     Indication: POST PROCEDURAL COMPLICATION
     Dosage: UNK
  10. GENTAMICIN. [Suspect]
     Active Substance: GENTAMICIN
     Indication: NECROTISING FASCIITIS
  11. CEFTRIAXONE. [Suspect]
     Active Substance: CEFTRIAXONE
     Indication: POST PROCEDURAL COMPLICATION
     Dosage: UNK
  12. GLUCOSE [Concomitant]
     Active Substance: DEXTROSE
     Dosage: 500 ML UNK
  13. AMOKSIKLAV /00756801/ [Concomitant]
     Dosage: 1 DF, 3X/DAY
     Dates: start: 201010
  14. DALACIN C [Suspect]
     Active Substance: CLINDAMYCIN PHOSPHATE
     Indication: POST PROCEDURAL COMPLICATION
     Dosage: 1200 MG, 2X/DAY
  15. AMPICILLIN [Suspect]
     Active Substance: AMPICILLIN
     Indication: POST PROCEDURAL COMPLICATION
     Dosage: UNK
  16. CEFAZOLIN [Suspect]
     Active Substance: CEFAZOLIN
     Indication: POST PROCEDURAL COMPLICATION
     Dosage: 3000 MG 1X/DAY (1000 MG, 3 TIMES DAILY)
     Route: 042
     Dates: start: 20101124
  17. GELOFUSINE /00523001/ [Concomitant]
     Active Substance: POLYGELINE\POTASSIUM CHLORIDE\SODIUM CHLORIDE
     Dosage: 500 ML, UNK
  18. IBUPROFEN. [Concomitant]
     Active Substance: IBUPROFEN
     Dosage: 400 MG, 3X/DAY
     Dates: start: 201010
  19. CEFTRIAXONE. [Suspect]
     Active Substance: CEFTRIAXONE
     Indication: NECROTISING FASCIITIS
  20. TRAMADOL. [Suspect]
     Active Substance: TRAMADOL
     Indication: POSTOPERATIVE ANALGESIA
     Dosage: 100 MG, 2X/DAY
     Route: 030
     Dates: start: 20101127
  21. FLUCONAZOLE. [Concomitant]
     Active Substance: FLUCONAZOLE
     Indication: POST PROCEDURAL COMPLICATION
     Dosage: UNK
  22. METROGYL [Suspect]
     Active Substance: METRONIDAZOLE
     Indication: POST PROCEDURAL COMPLICATION
     Dosage: 15 MG/KG, UNK
  23. CHLORHEXIDINE [Concomitant]
     Active Substance: CHLORHEXIDINE
     Dosage: MOUTH WASH
     Dates: start: 20101124
  24. FLUCONAZOLE. [Concomitant]
     Active Substance: FLUCONAZOLE
     Indication: NECROTISING FASCIITIS
  25. DIAZEPAM. [Concomitant]
     Active Substance: DIAZEPAM
     Dosage: 0.5% - 5ML
     Route: 042

REACTIONS (1)
  - Enterocolitis [Unknown]
